FAERS Safety Report 6429998-7 (Version None)
Quarter: 2009Q4

REPORT INFORMATION
  Report Type: 
  Country: None (occurrence: None)
  Receive Date: 20091106
  Receipt Date: 20091027
  Transmission Date: 20100525
  Serious: Yes (Other)
  Sender: FDA-Public Use
  Company Number: US-WYE-H11864409

PATIENT
  Sex: Female

DRUGS (4)
  1. PRISTIQ [Suspect]
     Indication: DEPRESSION
     Route: 048
     Dates: start: 20090901, end: 20091027
  2. ATIVAN [Concomitant]
     Indication: ANXIETY
     Dosage: 0.5 MG DAILY AS NEEDED
  3. ACETYLSALICYLIC ACID [Concomitant]
  4. AMBIEN [Concomitant]
     Indication: INSOMNIA

REACTIONS (8)
  - APATHY [None]
  - CONDITION AGGRAVATED [None]
  - DEPRESSED MOOD [None]
  - DEPRESSION [None]
  - DIARRHOEA [None]
  - GASTROINTESTINAL DISORDER [None]
  - NEGATIVE THOUGHTS [None]
  - SELF-INJURIOUS IDEATION [None]
